FAERS Safety Report 25481390 (Version 3)
Quarter: 2025Q3

REPORT INFORMATION
  Report Type: Spontaneous
  Country: JP (occurrence: JP)
  Receive Date: 20250626
  Receipt Date: 20250826
  Transmission Date: 20251021
  Serious: Yes (Hospitalization, Other)
  Sender: AMGEN
  Company Number: JP-KYOWAKIRIN-2025KK011966

PATIENT
  Age: 7 Decade
  Sex: Male

DRUGS (1)
  1. DARBEPOETIN ALFA [Suspect]
     Active Substance: DARBEPOETIN ALFA
     Indication: Nephrogenic anaemia
     Route: 040
     Dates: end: 202202

REACTIONS (4)
  - Arthritis bacterial [Unknown]
  - Arthritis bacterial [Unknown]
  - Osteomyelitis [Unknown]
  - Toe amputation [Unknown]

NARRATIVE: CASE EVENT DATE: 20201001
